APPROVED DRUG PRODUCT: KERYDIN
Active Ingredient: TAVABOROLE
Strength: 5% **Federal Register determination that product was not discontinued or withdrawn for safety or effectiveness reasons**
Dosage Form/Route: SOLUTION;TOPICAL
Application: N204427 | Product #001
Applicant: ANACOR PHARMACEUTICALS INC
Approved: Jul 7, 2014 | RLD: Yes | RS: No | Type: DISCN